FAERS Safety Report 4714513-6 (Version None)
Quarter: 2005Q3

REPORT INFORMATION
  Report Type: 
  Country: None (occurrence: None)
  Receive Date: 20050705
  Receipt Date: 20050128
  Transmission Date: 20060218
  Serious: Yes (Hospitalization, Other)
  Sender: FDA-Public Use
  Company Number: 2005-0007953

PATIENT
  Age: 42 Year
  Sex: Female
  Weight: 63.5036 kg

DRUGS (5)
  1. VIREAD [Suspect]
     Indication: HIV INFECTION
     Dosage: 300 MG, 1 IN 1 D, ORAL
     Route: 048
     Dates: start: 20041208, end: 20050103
  2. EPZICOM(ANTIVIRALS FOR SYSTEMIC USE) [Concomitant]
  3. SUSTIVA [Concomitant]
  4. BACTRIM DS [Concomitant]
  5. ZITHROMAX [Concomitant]

REACTIONS (3)
  - AIDS RELATED COMPLICATION [None]
  - NEPHROPATHY TOXIC [None]
  - RENAL FAILURE [None]
